FAERS Safety Report 6044353-X (Version None)
Quarter: 2009Q1

REPORT INFORMATION
  Report Type: 
  Country: None (occurrence: None)
  Receive Date: 20090120
  Receipt Date: 20090109
  Transmission Date: 20090719
  Serious: Yes (Other)
  Sender: FDA-Public Use
  Company Number: CA-JNJFOC-20081104258

PATIENT
  Sex: Female

DRUGS (6)
  1. REMICADE [Suspect]
     Dosage: A TOTAL OF 36 INFUSIONS HAD BEEN ADMINISTERED
  2. REMICADE [Suspect]
  3. REMICADE [Suspect]
     Indication: CROHN'S DISEASE
  4. PREDNISONE [Concomitant]
     Indication: PREMEDICATION
  5. SOLU-CORTEF [Concomitant]
     Indication: PREMEDICATION
  6. VITAMIN B-12 [Concomitant]
     Indication: VITAMIN B12 DEFICIENCY

REACTIONS (20)
  - AGGRESSION [None]
  - ANAPHYLACTOID REACTION [None]
  - ANGER [None]
  - BED BUG INFESTATION [None]
  - COUGH [None]
  - CRYING [None]
  - DELIRIUM [None]
  - DRUG INTOLERANCE [None]
  - DYSPHAGIA [None]
  - DYSPHONIA [None]
  - DYSPNOEA [None]
  - GAIT DISTURBANCE [None]
  - HEADACHE [None]
  - INFUSION RELATED REACTION [None]
  - IRRITABILITY [None]
  - MALAISE [None]
  - MENTAL DISORDER [None]
  - PRURITUS [None]
  - THROAT TIGHTNESS [None]
  - UNEVALUABLE EVENT [None]
